FAERS Safety Report 9728233 (Version 1)
Quarter: 2013Q4

REPORT INFORMATION
  Report Type: Spontaneous
  Country: US (occurrence: None)
  Receive Date: 20131202
  Receipt Date: 20131202
  Transmission Date: 20140711
  Serious: Yes (Hospitalization)
  Sender: FDA-Public Use
  Company Number: 13AE029

PATIENT
  Sex: Male

DRUGS (1)
  1. SELECT BRAND DIPHENHYDRAMINE HCL 25 MG CAPSULES [Suspect]
     Indication: RHINORRHOEA
     Dosage: 2 BY MOUTH/ ONCE
     Dates: start: 20131116

REACTIONS (4)
  - Vomiting [None]
  - Migraine [None]
  - Pyrexia [None]
  - Ocular hyperaemia [None]
